FAERS Safety Report 10102999 (Version 1)
Quarter: 2014Q2

REPORT INFORMATION
  Report Type: Spontaneous
  Country: US (occurrence: US)
  Receive Date: 20140424
  Receipt Date: 20140424
  Transmission Date: 20141212
  Serious: No
  Sender: FDA-Public Use
  Company Number: US-BRISTOL-MYERS SQUIBB COMPANY-20045787

PATIENT
  Age: 80 Year
  Sex: Female

DRUGS (3)
  1. ELIQUIS [Suspect]
     Indication: ATRIAL FIBRILLATION
  2. CLOPIDOGREL BISULFATE [Concomitant]
  3. CIMETIDINE [Concomitant]

REACTIONS (2)
  - Pain in extremity [Unknown]
  - Bone pain [Unknown]
